FAERS Safety Report 11858371 (Version 1)
Quarter: 2015Q4

REPORT INFORMATION
  Report Type: Spontaneous
  Country: TW (occurrence: TW)
  Receive Date: 20151222
  Receipt Date: 20151222
  Transmission Date: 20160305
  Serious: Yes (Other)
  Sender: FDA-Public Use
  Company Number: TW-ELI_LILLY_AND_COMPANY-TW201512006095

PATIENT
  Age: 49 Year
  Sex: Male

DRUGS (5)
  1. CRIZOTINIB [Concomitant]
     Active Substance: CRIZOTINIB
     Dosage: UNK, UNKNOWN
     Route: 065
     Dates: start: 20121012
  2. PEMETREXED [Suspect]
     Active Substance: PEMETREXED
     Indication: METASTASES TO LUNG
  3. CISPLATIN. [Concomitant]
     Active Substance: CISPLATIN
     Indication: METASTASES TO LUNG
  4. CISPLATIN. [Concomitant]
     Active Substance: CISPLATIN
     Indication: LUNG ADENOCARCINOMA
     Dosage: UNK, UNKNOWN
     Route: 065
  5. PEMETREXED [Suspect]
     Active Substance: PEMETREXED
     Indication: LUNG ADENOCARCINOMA
     Dosage: UNK, UNKNOWN
     Route: 065
     Dates: start: 20120427

REACTIONS (1)
  - Carcinoembryonic antigen increased [Recovering/Resolving]
